FAERS Safety Report 6718416-7 (Version None)
Quarter: 2010Q2

REPORT INFORMATION
  Report Type: 
  Country: None (occurrence: None)
  Receive Date: 20100510
  Receipt Date: 20100425
  Transmission Date: 20101027
  Serious: Yes (Hospitalization)
  Sender: FDA-Public Use
  Company Number: IL-GENENTECH-300289

PATIENT
  Age: 72 Year
  Sex: Female

DRUGS (2)
  1. LUCENTIS [Suspect]
     Indication: MACULAR DEGENERATION
     Route: 031
  2. LUCENTIS [Suspect]
     Indication: MACULAR OEDEMA

REACTIONS (7)
  - BLINDNESS [None]
  - ENDOPHTHALMITIS [None]
  - EYE INFLAMMATION [None]
  - EYE OPERATION [None]
  - INTRAOCULAR PRESSURE INCREASED [None]
  - RETINAL DETACHMENT [None]
  - VISUAL ACUITY REDUCED [None]
